FAERS Safety Report 17031242 (Version 3)
Quarter: 2020Q1

REPORT INFORMATION
  Report Type: Spontaneous
  Country: US (occurrence: US)
  Receive Date: 20191114
  Receipt Date: 20200103
  Transmission Date: 20200409
  Serious: No
  Sender: FDA-Public Use
  Company Number: US-PFIZER INC-2019446983

PATIENT
  Age: 67 Year
  Sex: Female

DRUGS (3)
  1. EUCRISA [Suspect]
     Active Substance: CRISABOROLE
     Indication: DERMATITIS ATOPIC
  2. EUCRISA [Suspect]
     Active Substance: CRISABOROLE
     Indication: SKIN DISORDER
  3. EUCRISA [Suspect]
     Active Substance: CRISABOROLE
     Indication: ECZEMA NUMMULAR
     Dosage: UNK, 2X/DAY

REACTIONS (3)
  - Seborrhoea [Unknown]
  - Headache [Unknown]
  - Therapeutic product effect incomplete [Unknown]
